FAERS Safety Report 23600508 (Version 1)
Quarter: 2024Q1

REPORT INFORMATION
  Report Type: Spontaneous
  Country: US (occurrence: US)
  Receive Date: 20240306
  Receipt Date: 20240306
  Transmission Date: 20240409
  Serious: No
  Sender: FDA-Public Use
  Company Number: US-SAMSUNG BIOEPIS-SB-2023-27473

PATIENT
  Age: 62 Year
  Sex: Female

DRUGS (1)
  1. HADLIMA [Suspect]
     Active Substance: ADALIMUMAB-BWWD
     Indication: Crohn^s disease
     Dosage: UNKNOWN
     Route: 065
     Dates: start: 20230924

REACTIONS (4)
  - Lymphadenopathy [Recovered/Resolved]
  - Oral pain [Unknown]
  - Malaise [Unknown]
  - Agitation [Unknown]

NARRATIVE: CASE EVENT DATE: 20231008
